FAERS Safety Report 20605745 (Version 1)
Quarter: 2022Q1

REPORT INFORMATION
  Report Type: Spontaneous
  Country: FR (occurrence: FR)
  Receive Date: 20220317
  Receipt Date: 20220317
  Transmission Date: 20220424
  Serious: No
  Sender: FDA-Public Use
  Company Number: FR-ALKEM LABORATORIES LIMITED-FR-ALKEM-2022-00201

PATIENT
  Age: 22 Year
  Sex: Female

DRUGS (4)
  1. ARIPIPRAZOLE [Suspect]
     Active Substance: ARIPIPRAZOLE
     Indication: Encephalitis
     Dosage: UNK
     Route: 065
  2. RISPERIDONE [Suspect]
     Active Substance: RISPERIDONE
     Indication: Encephalitis
     Dosage: UNK
     Route: 065
  3. LEVOMEPROMAZINE [Suspect]
     Active Substance: LEVOMEPROMAZINE
     Indication: Encephalitis
     Dosage: UNK
     Route: 065
  4. CYAMEMAZINE [Suspect]
     Active Substance: CYAMEMAZINE
     Indication: Encephalitis
     Dosage: UNK
     Route: 065

REACTIONS (3)
  - Mutism [Unknown]
  - Catatonia [Unknown]
  - Hyperthermia [Unknown]
